FAERS Safety Report 14659590 (Version 1)
Quarter: 2018Q1

REPORT INFORMATION
  Report Type: Report from Study
  Country: NL (occurrence: NL)
  Receive Date: 20180320
  Receipt Date: 20180320
  Transmission Date: 20180509
  Serious: Yes (Other)
  Sender: FDA-Public Use
  Company Number: NL-BAYER-2018-048594

PATIENT
  Age: 60 Year
  Sex: Female
  Weight: 72 kg

DRUGS (2)
  1. GADOVIST [Suspect]
     Active Substance: GADOBUTROL
     Indication: NUCLEAR MAGNETIC RESONANCE IMAGING BREAST
     Dosage: 7 MMOL/KG, ONCE 1 ML/SEC
     Route: 042
     Dates: start: 20180310, end: 20180310
  2. CARBASALATE CALCIUM [Concomitant]
     Active Substance: CARBASPIRIN
     Dosage: 100 MG, UNK
     Dates: start: 2003

REACTIONS (1)
  - Presyncope [Recovered/Resolved]

NARRATIVE: CASE EVENT DATE: 20180310
